FAERS Safety Report 6602436-7 (Version None)
Quarter: 2010Q1

REPORT INFORMATION
  Report Type: 
  Country: None (occurrence: None)
  Receive Date: 20100225
  Receipt Date: 20100217
  Transmission Date: 20100710
  Serious: Yes (Hospitalization)
  Sender: FDA-Public Use
  Company Number: US-GILEAD-2010-0027165

PATIENT
  Sex: Female
  Weight: 65.83 kg

DRUGS (18)
  1. LETAIRIS [Suspect]
     Indication: PULMONARY ARTERIAL HYPERTENSION
     Route: 048
     Dates: start: 20090621
  2. NEXIUM [Concomitant]
  3. CYMBALTA [Concomitant]
  4. REMODULIN [Concomitant]
  5. LYRICA [Concomitant]
  6. TYLENOL-500 [Concomitant]
  7. AMITRIPTYLINE HCL [Concomitant]
  8. CLONIDINE [Concomitant]
  9. GABAPENTIN [Concomitant]
  10. KETAMINE HCL [Concomitant]
  11. KETOPROFEN [Concomitant]
  12. LECTITHIN [Concomitant]
  13. LIDOCAINE [Concomitant]
  14. POLOXAMER [Concomitant]
  15. REVATIO [Concomitant]
  16. OXYGEN [Concomitant]
  17. SYNTHROID [Concomitant]
  18. HYDROCHLOROTHIAZIDE [Concomitant]

REACTIONS (1)
  - UNEVALUABLE EVENT [None]
